FAERS Safety Report 6154243-X (Version None)
Quarter: 2009Q2

REPORT INFORMATION
  Report Type: 
  Country: None (occurrence: None)
  Receive Date: 20090414
  Receipt Date: 20090401
  Transmission Date: 20091009
  Serious: Yes (Hospitalization, Other)
  Sender: FDA-Public Use
  Company Number: US-ROCHE-521380

PATIENT
  Sex: Male
  Weight: 63.5 kg

DRUGS (1)
  1. ACCUTANE [Suspect]
     Dosage: REPORTED AS 40MG BID
     Route: 048
     Dates: start: 19980211, end: 19981013

REACTIONS (26)
  - ANAEMIA [None]
  - ANXIETY [None]
  - APPENDICEAL ABSCESS [None]
  - APPENDICITIS [None]
  - ARTHRITIS [None]
  - BLOOD TRIGLYCERIDES INCREASED [None]
  - CLOSTRIDIAL INFECTION [None]
  - COLITIS [None]
  - COLITIS ULCERATIVE [None]
  - DEPRESSION [None]
  - GALLBLADDER POLYP [None]
  - GASTROOESOPHAGEAL REFLUX DISEASE [None]
  - HERNIA [None]
  - HIATUS HERNIA [None]
  - HYDRONEPHROSIS [None]
  - HYPOKALAEMIA [None]
  - ILEUS [None]
  - INFLAMMATORY BOWEL DISEASE [None]
  - INGUINAL HERNIA [None]
  - IRRITABLE BOWEL SYNDROME [None]
  - PANCREATITIS [None]
  - PHARYNGITIS STREPTOCOCCAL [None]
  - PLEURAL EFFUSION [None]
  - POLYP [None]
  - POUCHITIS [None]
  - SACROILIITIS [None]
